FAERS Safety Report 6766481-3 (Version None)
Quarter: 2010Q2

REPORT INFORMATION
  Report Type: 
  Country: None (occurrence: None)
  Receive Date: 20100609
  Receipt Date: 20100602
  Transmission Date: 20101027
  Serious: Yes (Other)
  Sender: FDA-Public Use
  Company Number: 2010AL003262

PATIENT
  Sex: 0

DRUGS (2)
  1. VENLAFAXINE HCL [Suspect]
     Indication: DRUG USE FOR UNKNOWN INDICATION
     Dosage: PO
     Route: 048
  2. TOPAMAX [Concomitant]

REACTIONS (5)
  - DRUG DISPENSING ERROR [None]
  - MEDICATION ERROR [None]
  - PRODUCT PACKAGING ISSUE [None]
  - PRODUCT QUALITY ISSUE [None]
  - PRODUCT TAMPERING [None]
